FAERS Safety Report 15221288 (Version 1)
Quarter: 2018Q3

REPORT INFORMATION
  Report Type: Spontaneous
  Country: FR (occurrence: FR)
  Receive Date: 20180731
  Receipt Date: 20180731
  Transmission Date: 20181010
  Serious: Yes (Other)
  Sender: FDA-Public Use
  Company Number: FR-SA-2018SA202465

PATIENT
  Age: 48 Year
  Sex: Female
  Weight: 69 kg

DRUGS (1)
  1. AUBAGIO [Suspect]
     Active Substance: TERIFLUNOMIDE
     Indication: MULTIPLE SCLEROSIS
     Dosage: 1 DF, QD
     Route: 048
     Dates: start: 20180417, end: 20180430

REACTIONS (20)
  - Asthmatic crisis [Unknown]
  - Malaise [Unknown]
  - Tachycardia [Unknown]
  - Influenza like illness [Unknown]
  - Pyrexia [Unknown]
  - Eye swelling [Unknown]
  - Hot flush [Unknown]
  - Diffuse alopecia [Unknown]
  - Swelling [Unknown]
  - Oral herpes [Unknown]
  - Sneezing [Unknown]
  - Lacrimation increased [Unknown]
  - Abdominal pain upper [Unknown]
  - Abdominal distension [Unknown]
  - Musculoskeletal pain [Unknown]
  - Insomnia [Unknown]
  - Muscle spasms [Unknown]
  - Fatigue [Unknown]
  - Gastrooesophageal reflux disease [Unknown]
  - Cough [Unknown]

NARRATIVE: CASE EVENT DATE: 20180417
